FAERS Safety Report 5055183-X (Version None)
Quarter: 2006Q3

REPORT INFORMATION
  Report Type: 
  Country: None (occurrence: None)
  Receive Date: 20060714
  Receipt Date: 20060704
  Transmission Date: 20061208
  Serious: Yes (Other)
  Sender: FDA-Public Use
  Company Number: HQWYE731110APR06

PATIENT
  Sex: Female

DRUGS (4)
  1. PANTOPRAZOLE SODIUM [Suspect]
     Dosage: 40 MG 1X PER 1 DAY, ORAL
     Route: 048
  2. ZOPICLONE                    (ZOPICLONE) [Concomitant]
  3. ALTACE [Concomitant]
  4. METOPROLOL                     (METOPROLOL) [Concomitant]

REACTIONS (1)
  - BURNING SENSATION [None]
